FAERS Safety Report 10738436 (Version 1)
Quarter: 2015Q1

REPORT INFORMATION
  Report Type: Spontaneous
  Country: IN (occurrence: IN)
  Receive Date: 20150126
  Receipt Date: 20150126
  Transmission Date: 20150721
  Serious: Yes (Other)
  Sender: FDA-Public Use
  Company Number: IN-WATSON-2015-00730

PATIENT
  Age: 45 Month
  Sex: Female

DRUGS (2)
  1. SODIUM VALPROATE (UNKNOWN) [Suspect]
     Active Substance: VALPROATE SODIUM
     Indication: INFANTILE SPASMS
     Dosage: 30 MG/KG, DAILY
     Route: 065
  2. CLONAZEPAM (UNKNOWN) [Concomitant]
     Active Substance: CLONAZEPAM
     Indication: INFANTILE SPASMS
     Dosage: UNK
     Route: 065

REACTIONS (2)
  - Encephalopathy [Recovered/Resolved]
  - Drug level above therapeutic [Unknown]
